FAERS Safety Report 16884658 (Version 2)
Quarter: 2022Q1

REPORT INFORMATION
  Report Type: Report from Study
  Country: US (occurrence: US)
  Receive Date: 20191004
  Receipt Date: 20220105
  Transmission Date: 20220423
  Serious: Yes (Hospitalization)
  Sender: FDA-Public Use
  Company Number: US-BIOGEN-2019BI00791593

PATIENT
  Age: 66 Year
  Sex: Female

DRUGS (35)
  1. TECFIDERA [Suspect]
     Active Substance: DIMETHYL FUMARATE
     Indication: Multiple sclerosis
     Dosage: STARTING DOSE
     Route: 048
     Dates: start: 20150826
  2. TECFIDERA [Suspect]
     Active Substance: DIMETHYL FUMARATE
     Dosage: MAINTENANCE DOSE
     Route: 048
  3. OXYBUTYNIN CHLORIDE [Concomitant]
     Active Substance: OXYBUTYNIN CHLORIDE
     Indication: Product used for unknown indication
     Route: 065
  4. OXYBUTYNIN CHLORIDE [Concomitant]
     Active Substance: OXYBUTYNIN CHLORIDE
     Route: 048
  5. MELOXICAM [Concomitant]
     Active Substance: MELOXICAM
     Indication: Product used for unknown indication
     Route: 065
  6. MELOXICAM [Concomitant]
     Active Substance: MELOXICAM
     Route: 048
  7. LISINOPRIL [Concomitant]
     Active Substance: LISINOPRIL
     Indication: Product used for unknown indication
     Route: 065
  8. LISINOPRIL [Concomitant]
     Active Substance: LISINOPRIL
     Route: 048
  9. INVOKANA [Concomitant]
     Active Substance: CANAGLIFLOZIN
     Indication: Product used for unknown indication
     Route: 065
  10. JANUVIA [Concomitant]
     Active Substance: SITAGLIPTIN PHOSPHATE
     Indication: Product used for unknown indication
     Route: 065
  11. JANUVIA [Concomitant]
     Active Substance: SITAGLIPTIN PHOSPHATE
     Route: 048
  12. METFORMIN HYDROCHLORIDE [Concomitant]
     Active Substance: METFORMIN HYDROCHLORIDE
     Indication: Product used for unknown indication
     Route: 065
  13. METFORMIN HYDROCHLORIDE [Concomitant]
     Active Substance: METFORMIN HYDROCHLORIDE
     Route: 065
  14. LEVOTHYROXINE SODIUM [Concomitant]
     Active Substance: LEVOTHYROXINE SODIUM
     Indication: Product used for unknown indication
     Route: 065
  15. LEVOTHYROXINE SODIUM [Concomitant]
     Active Substance: LEVOTHYROXINE SODIUM
     Route: 048
  16. ASPIRIN [Concomitant]
     Active Substance: ASPIRIN
     Indication: Product used for unknown indication
     Route: 065
  17. ASPIRIN [Concomitant]
     Active Substance: ASPIRIN
     Route: 048
  18. VITAMIN D3 [Concomitant]
     Active Substance: CHOLECALCIFEROL
     Indication: Product used for unknown indication
     Route: 048
  19. CHOLECALCIFEROL [Concomitant]
     Active Substance: CHOLECALCIFEROL
     Indication: Product used for unknown indication
     Route: 048
  20. CHOLECALCIFEROL [Concomitant]
     Active Substance: CHOLECALCIFEROL
     Route: 048
  21. GABAPENTIN [Concomitant]
     Active Substance: GABAPENTIN
     Indication: Back pain
     Dosage: BEFORE BED
     Route: 048
  22. GABAPENTIN [Concomitant]
     Active Substance: GABAPENTIN
     Route: 065
  23. DONEPEZIL [Concomitant]
     Active Substance: DONEPEZIL
     Indication: Product used for unknown indication
     Dosage: AT BEDTIME
     Route: 048
  24. BACLOFEN [Concomitant]
     Active Substance: BACLOFEN
     Indication: Product used for unknown indication
     Route: 048
  25. TRESIBA [Concomitant]
     Active Substance: INSULIN DEGLUDEC
     Indication: Product used for unknown indication
     Dosage: 100 UNITS/ML
     Route: 058
  26. MYRBETRIQ [Concomitant]
     Active Substance: MIRABEGRON
     Indication: Product used for unknown indication
     Dosage: EXTENDED RELEASE
     Route: 048
  27. L Methyl folate [Concomitant]
     Indication: Product used for unknown indication
     Route: 048
  28. Centrum Sliver ultra-womens [Concomitant]
     Indication: Product used for unknown indication
     Route: 048
  29. CRESTOR [Concomitant]
     Active Substance: ROSUVASTATIN CALCIUM
     Indication: Product used for unknown indication
     Route: 058
  30. NAMENDA [Concomitant]
     Active Substance: MEMANTINE HYDROCHLORIDE
     Indication: Amnesia
     Route: 066
  31. ARICEPT [Concomitant]
     Active Substance: DONEPEZIL HYDROCHLORIDE
     Indication: Product used for unknown indication
     Route: 065
  32. SERTRALINE [Concomitant]
     Active Substance: SERTRALINE HYDROCHLORIDE
     Indication: Affective disorder
     Route: 048
  33. LEVOTHYROXINE [Concomitant]
     Active Substance: LEVOTHYROXINE
     Indication: Product used for unknown indication
     Dosage: 50 MCG
     Route: 048
  34. OXYBUTYNIN [Concomitant]
     Active Substance: OXYBUTYNIN
     Indication: Product used for unknown indication
     Dosage: 10MG/24HR
     Route: 065
  35. OXYBUTYNIN [Concomitant]
     Active Substance: OXYBUTYNIN
     Route: 048

REACTIONS (3)
  - Cardiac disorder [Unknown]
  - Loss of consciousness [Recovered/Resolved]
  - Accident [Unknown]

NARRATIVE: CASE EVENT DATE: 20191001
